FAERS Safety Report 24618447 (Version 2)
Quarter: 2025Q1

REPORT INFORMATION
  Report Type: Spontaneous
  Country: GB (occurrence: GB)
  Receive Date: 20241114
  Receipt Date: 20250121
  Transmission Date: 20250409
  Serious: Yes (Hospitalization, Other)
  Sender: MYLAN
  Company Number: GB-MYLANLABS-2024M1100905

PATIENT
  Sex: Female

DRUGS (2)
  1. CLOZARIL [Suspect]
     Active Substance: CLOZAPINE
     Indication: Schizophrenia
     Route: 048
     Dates: start: 20240105, end: 202410
  2. CLOZARIL [Suspect]
     Active Substance: CLOZAPINE
     Route: 048
     Dates: end: 20241220

REACTIONS (8)
  - Hospitalisation [Unknown]
  - Schizophrenia [Unknown]
  - Mental impairment [Unknown]
  - Paranoia [Unknown]
  - Patient elopement [Unknown]
  - Psychotic disorder [Unknown]
  - Delusion [Unknown]
  - Treatment noncompliance [Unknown]
